FAERS Safety Report 5645555-4 (Version None)
Quarter: 2008Q1

REPORT INFORMATION
  Report Type: 
  Country: None (occurrence: None)
  Receive Date: 20080229
  Receipt Date: 20080207
  Transmission Date: 20080703
  Serious: Yes (Death)
  Sender: FDA-Public Use
  Company Number: GB-RANBAXY-2008RR-12354

PATIENT

DRUGS (4)
  1. SIMVASTATIN [Suspect]
     Indication: BLOOD CHOLESTEROL INCREASED
     Dosage: UNK
     Route: 048
     Dates: start: 20070401
  2. SIMVASTATIN [Suspect]
     Dosage: UNK
     Route: 048
     Dates: start: 20070401
  3. ASPIRIN [Concomitant]
     Dosage: UNK
     Route: 065
     Dates: start: 20050117
  4. METFORMIN 500MG TABLETS [Concomitant]
     Dosage: 4 DF, UNK
     Route: 048
     Dates: start: 20050117

REACTIONS (6)
  - ABNORMAL DREAMS [None]
  - AMNESIA [None]
  - COMPLETED SUICIDE [None]
  - MENTAL DISORDER [None]
  - MULTIPLE INJURIES [None]
  - NIGHTMARE [None]
